FAERS Safety Report 9405659 (Version 1)
Quarter: 2013Q3

REPORT INFORMATION
  Report Type: Spontaneous
  Country: DK (occurrence: DK)
  Receive Date: 20130717
  Receipt Date: 20130717
  Transmission Date: 20140515
  Serious: Yes (Life-Threatening)
  Sender: FDA-Public Use
  Company Number: DK-TEVA-418187ISR

PATIENT
  Age: 52 Year
  Sex: Male

DRUGS (1)
  1. EMTHEXATE [Suspect]
     Indication: PSORIASIS
     Dosage: STRENGTH: 10 MG
     Route: 030

REACTIONS (1)
  - Acute myocardial infarction [Recovered/Resolved with Sequelae]
